FAERS Safety Report 13168080 (Version 1)
Quarter: 2017Q1

REPORT INFORMATION
  Report Type: Spontaneous
  Country: US (occurrence: US)
  Receive Date: 20170131
  Receipt Date: 20170131
  Transmission Date: 20170428
  Serious: No
  Sender: FDA-Public Use
  Company Number: US-PFIZER INC-2017038686

PATIENT
  Age: 69 Year
  Sex: Male
  Weight: 59.86 kg

DRUGS (2)
  1. VIAGRA [Suspect]
     Active Substance: SILDENAFIL CITRATE
     Dosage: 25 MG, UNK, (TOLD ME TO CUT THE 50 MG IN HALF AND THAT^S WHAT I DID)
  2. VIAGRA [Suspect]
     Active Substance: SILDENAFIL CITRATE
     Indication: ERECTILE DYSFUNCTION
     Dosage: 50 MG, 1X/DAY
     Route: 048
     Dates: start: 20170125

REACTIONS (2)
  - Drug ineffective [Unknown]
  - Therapeutic response unexpected [Unknown]

NARRATIVE: CASE EVENT DATE: 20170125
